FAERS Safety Report 15490136 (Version 1)
Quarter: 2018Q4

REPORT INFORMATION
  Report Type: Spontaneous
  Country: FR (occurrence: FR)
  Receive Date: 20181011
  Receipt Date: 20181011
  Transmission Date: 20190205
  Serious: Yes (Other)
  Sender: FDA-Public Use
  Company Number: FR-MYLANLABS-2018M1075091

PATIENT
  Sex: Female

DRUGS (2)
  1. REBIF [Interacting]
     Active Substance: INTERFERON BETA-1A
     Indication: PRODUCT USED FOR UNKNOWN INDICATION
     Dosage: UNK,(25 (UNSPECIFIED UNITS))
  2. LAMOTRIGINE. [Suspect]
     Active Substance: LAMOTRIGINE
     Indication: PRODUCT USED FOR UNKNOWN INDICATION
     Dosage: UNK,(THERAPY START DATE: 27 APR 2018)
     Route: 065
     Dates: start: 20180427

REACTIONS (2)
  - Epilepsy [Unknown]
  - Drug interaction [Unknown]

NARRATIVE: CASE EVENT DATE: 201704
